FAERS Safety Report 9022307 (Version 1)
Quarter: 2013Q1

REPORT INFORMATION
  Report Type: Spontaneous
  Country: PT (occurrence: PT)
  Receive Date: 20130118
  Receipt Date: 20130118
  Transmission Date: 20140127
  Serious: Yes (Hospitalization)
  Sender: FDA-Public Use
  Company Number: PT-009507513-1301PRT007838

PATIENT
  Age: 18 Year
  Sex: Female

DRUGS (1)
  1. ZOELY [Suspect]
     Indication: CONTRACEPTION
     Dosage: UNK
     Dates: start: 201211, end: 20121226

REACTIONS (6)
  - Anxiety [Recovering/Resolving]
  - Increased appetite [Recovered/Resolved]
  - Weight increased [Unknown]
  - Abdominal distension [Recovered/Resolved]
  - Heart rate increased [Unknown]
  - Drug dose omission [Unknown]
